FAERS Safety Report 5020993-1 (Version None)
Quarter: 2006Q2

REPORT INFORMATION
  Report Type: 
  Country: None (occurrence: None)
  Receive Date: 20060602
  Receipt Date: 20060523
  Transmission Date: 20061013
  Serious: Yes (Other)
  Sender: FDA-Public Use
  Company Number: CHPA2006US05075

PATIENT
  Age: 58 Year
  Sex: Female
  Weight: 68 kg

DRUGS (2)
  1. BENEFIBER FIBER SUPPLEMENT SUGAR FREE (NCH) (GUAR GUM)POWDER [Suspect]
     Dosage: 3TSP, ONCE/SINGLE; ORAL
     Route: 048
     Dates: start: 20060522
  2. DRUG THERAPY NOS (DRUG THERAPY NOS) [Concomitant]

REACTIONS (7)
  - BLOOD PRESSURE DECREASED [None]
  - FEELING HOT [None]
  - HYPOTENSION [None]
  - LOSS OF CONSCIOUSNESS [None]
  - NAUSEA [None]
  - STOMACH DISCOMFORT [None]
  - SYNCOPE VASOVAGAL [None]
